FAERS Safety Report 4712850-2 (Version None)
Quarter: 2005Q3

REPORT INFORMATION
  Report Type: 
  Country: None (occurrence: None)
  Receive Date: 20050712
  Receipt Date: 20050712
  Transmission Date: 20060218
  Serious: Yes (Other)
  Sender: FDA-Public Use
  Company Number: None

PATIENT
  Sex: Female
  Weight: 67 kg

DRUGS (2)
  1. DOXORUBICIN [Suspect]
     Dosage: 60 MG/M2
     Dates: start: 20050525
  2. CYCLOPHOSPHAMIDE [Suspect]
     Indication: BREAST CANCER
     Dosage: 600 MG/M2 IV Q 3 WKS X 4 CYCLES
     Route: 042

REACTIONS (6)
  - FATIGUE [None]
  - FEBRILE NEUTROPENIA [None]
  - NAUSEA [None]
  - SEPTIC SHOCK [None]
  - STOMATITIS [None]
  - VOMITING [None]
